FAERS Safety Report 25241065 (Version 2)
Quarter: 2025Q2

REPORT INFORMATION
  Report Type: Spontaneous
  Country: CH (occurrence: CH)
  Receive Date: 20250425
  Receipt Date: 20250428
  Transmission Date: 20250717
  Serious: Yes (Other)
  Sender: NOVARTIS
  Company Number: CH-002147023-NVSC2025CH063211

PATIENT
  Sex: Female

DRUGS (1)
  1. KESIMPTA [Suspect]
     Active Substance: OFATUMUMAB
     Indication: Product used for unknown indication
     Route: 065

REACTIONS (8)
  - Breast cancer [Unknown]
  - Tonsillar inflammation [Unknown]
  - Bronchitis [Unknown]
  - Dizziness [Unknown]
  - Pyrexia [Unknown]
  - Headache [Unknown]
  - Hyperhidrosis [Unknown]
  - Product dose omission issue [Unknown]

NARRATIVE: CASE EVENT DATE: 20250412
